FAERS Safety Report 17355305 (Version 4)
Quarter: 2020Q1

REPORT INFORMATION
  Report Type: Report from Study
  Country: None (occurrence: LT)
  Receive Date: 20200131
  Receipt Date: 20200305
  Transmission Date: 20200409
  Serious: Yes (Hospitalization)
  Sender: FDA-Public Use
  Company Number: LT-ABBVIE-20K-234-3258399-00

PATIENT
  Age: 23 Year
  Sex: Female

DRUGS (4)
  1. CIPROFLOXACINE [Suspect]
     Active Substance: CIPROFLOXACIN
     Indication: C-REACTIVE PROTEIN INCREASED
     Route: 065
     Dates: start: 202001, end: 202001
  2. AZATHIOPRINE. [Concomitant]
     Active Substance: AZATHIOPRINE
     Indication: PRODUCT USED FOR UNKNOWN INDICATION
     Dates: start: 202001
  3. HUMIRA [Suspect]
     Active Substance: ADALIMUMAB
     Indication: CROHN^S DISEASE
     Route: 058
     Dates: start: 20181016, end: 201911
  4. HUMIRA [Suspect]
     Active Substance: ADALIMUMAB
     Route: 058
     Dates: start: 202001, end: 202002

REACTIONS (12)
  - Anal abscess [Recovered/Resolved]
  - Drug ineffective [Unknown]
  - Body temperature increased [Recovered/Resolved]
  - Nausea [Not Recovered/Not Resolved]
  - Abscess drainage [Recovered/Resolved]
  - Anal abscess [Recovered/Resolved]
  - Diarrhoea [Not Recovered/Not Resolved]
  - Abscess drainage [Recovering/Resolving]
  - Weight decreased [Recovered/Resolved]
  - Anal fistula [Recovering/Resolving]
  - Food aversion [Not Recovered/Not Resolved]
  - Vomiting [Not Recovered/Not Resolved]

NARRATIVE: CASE EVENT DATE: 201911
